FAERS Safety Report 8969876 (Version 1)
Quarter: 2012Q4

REPORT INFORMATION
  Report Type: 
  Country: US (occurrence: US)
  Receive Date: 20121218
  Receipt Date: 20121218
  Transmission Date: 20130627
  Serious: Yes (Other)
  Sender: FDA-Public Use
  Company Number: US-BRISTOL-MYERS SQUIBB COMPANY-16548034

PATIENT
  Age: 54 Year
  Sex: Male
  Weight: 81.63 kg

DRUGS (11)
  1. ABILIFY [Suspect]
     Indication: PAIN
     Dates: start: 201112
  2. ABILIFY [Suspect]
     Indication: DEPRESSION
     Dates: start: 201112
  3. CYMBALTA [Suspect]
     Indication: DEPRESSION
     Dates: start: 201112
  4. CYMBALTA [Suspect]
     Indication: PAIN
     Dates: start: 201112
  5. CHANTIX [Suspect]
     Indication: EX-TOBACCO USER
     Dates: start: 20120316
  6. DILANTIN [Concomitant]
  7. COGENTIN [Concomitant]
  8. OXYCODONE [Concomitant]
     Indication: PAIN
  9. BENTYL [Concomitant]
     Indication: PAIN
  10. LAMICTAL [Concomitant]
  11. ZANAFLEX [Concomitant]
     Indication: MUSCLE SPASMS
     Dates: start: 2011

REACTIONS (1)
  - Depression [Not Recovered/Not Resolved]
